FAERS Safety Report 7623902-1 (Version None)
Quarter: 2011Q3

REPORT INFORMATION
  Report Type: 
  Country: None (occurrence: None)
  Receive Date: 20110720
  Receipt Date: 20110714
  Transmission Date: 20111222
  Serious: Yes (Hospitalization, Other)
  Sender: FDA-Public Use
  Company Number: US-PFIZER INC-2011071988

PATIENT
  Sex: Male

DRUGS (8)
  1. NEURONTIN [Concomitant]
     Indication: CONVULSION
     Dosage: UNK
     Dates: start: 20000101
  2. METFORMIN [Concomitant]
     Indication: DIABETES MELLITUS
     Dosage: UNK
     Dates: start: 20000101
  3. TOPROL-XL [Concomitant]
     Indication: HYPERTENSION
     Dosage: UNK
     Dates: start: 20030101, end: 20110101
  4. CHANTIX [Suspect]
     Indication: SMOKING CESSATION THERAPY
     Dosage: UNK
     Dates: start: 20071101, end: 20071201
  5. ALBUTEROL SULFATE AUTOHALER [Concomitant]
     Indication: CHRONIC OBSTRUCTIVE PULMONARY DISEASE
     Dosage: UNK
     Dates: start: 20000101
  6. OXYCONTIN [Concomitant]
     Indication: PAIN
     Dosage: UNK
     Dates: start: 19980101, end: 20110101
  7. KEPPRA [Concomitant]
     Indication: CONVULSION
     Dosage: UNK
     Dates: start: 20000101
  8. XANAX [Concomitant]
     Indication: ANXIETY
     Dosage: UNK
     Dates: start: 20000101, end: 20110101

REACTIONS (6)
  - DEPRESSION [None]
  - ANXIETY [None]
  - AGITATION [None]
  - SUICIDAL IDEATION [None]
  - LOSS OF CONSCIOUSNESS [None]
  - CONVULSION [None]
